FAERS Safety Report 8507242 (Version 2)
Quarter: 2012Q4

REPORT INFORMATION
  Report Type: Report from Study
  Country: ES (occurrence: ES)
  Receive Date: 20120412
  Receipt Date: 20121010
  Transmission Date: 20130627
  Serious: Yes (Death, Hospitalization)
  Sender: FDA-Public Use
  Company Number: ES-CELGENEUS-144-21880-11114035

PATIENT
  Age: 55 Year
  Sex: Male

DRUGS (3)
  1. REVLIMID [Suspect]
     Indication: MULTIPLE MYELOMA
     Dosage: 20 Milligram
     Route: 048
     Dates: start: 20091026, end: 20091115
  2. DEXAMETHASONE [Suspect]
     Indication: MULTIPLE MYELOMA
     Route: 048
     Dates: start: 20091026, end: 20091115
  3. LBH589 [Suspect]
     Indication: MULTIPLE MYELOMA
     Route: 048
     Dates: start: 20091026, end: 20091115

REACTIONS (4)
  - Multi-organ failure [Fatal]
  - Respiratory tract infection [Not Recovered/Not Resolved]
  - Escherichia sepsis [Not Recovered/Not Resolved]
  - Staphylococcal sepsis [Not Recovered/Not Resolved]
